FAERS Safety Report 4442751-9 (Version None)
Quarter: 2004Q3

REPORT INFORMATION
  Report Type: 
  Country: None (occurrence: None)
  Receive Date: 20040903
  Receipt Date: 20040614
  Transmission Date: 20050211
  Serious: Yes (Other)
  Sender: FDA-Public Use
  Company Number: 2004UW12387

PATIENT
  Sex: Male

DRUGS (4)
  1. CRESTOR [Suspect]
  2. ATACAND [Concomitant]
  3. TOPROL-XL [Concomitant]
  4. NORVASC [Concomitant]

REACTIONS (1)
  - BLOOD UREA INCREASED [None]
